FAERS Safety Report 4287654-8 (Version None)
Quarter: 2004Q1

REPORT INFORMATION
  Report Type: 
  Country: None (occurrence: None)
  Receive Date: 20040209
  Receipt Date: 20030819
  Transmission Date: 20041129
  Serious: No
  Sender: FDA-Public Use
  Company Number: US-GLAXOSMITHKLINE-A0422649A

PATIENT
  Sex: Male

DRUGS (3)
  1. PAXIL [Suspect]
     Indication: DEPRESSION
     Dosage: 25MG PER DAY
     Route: 048
     Dates: start: 20030701
  2. ATIVAN [Concomitant]
  3. IMIPRAMINE [Concomitant]
     Dosage: 200MG PER DAY

REACTIONS (2)
  - ANXIETY [None]
  - DRUG INEFFECTIVE [None]
